FAERS Safety Report 8852399 (Version 1)
Quarter: 2012Q4

REPORT INFORMATION
  Report Type: Spontaneous
  Country: BE (occurrence: None)
  Receive Date: 20121012
  Receipt Date: 20121012
  Transmission Date: 20130627
  Serious: Yes (Hospitalization, Other)
  Sender: FDA-Public Use
  Company Number: 2012P1054491

PATIENT
  Age: 86 Year
  Sex: Male

DRUGS (4)
  1. METRONIDAZOLE [Suspect]
     Indication: PERIHEPATIC ABSCESS
     Route: 048
  2. CIPROFLOXACINE [Concomitant]
  3. ANTIVITAMIN K [Concomitant]
  4. DIGOXINE [Concomitant]

REACTIONS (8)
  - Neuropathy peripheral [None]
  - Nystagmus [None]
  - Gait disturbance [None]
  - Diplopia [None]
  - Dysarthria [None]
  - Cerebellar syndrome [None]
  - Extraocular muscle disorder [None]
  - Areflexia [None]
